FAERS Safety Report 4447245-2 (Version None)
Quarter: 2004Q3

REPORT INFORMATION
  Report Type: 
  Country: None (occurrence: None)
  Receive Date: 20040908
  Receipt Date: 20040908
  Transmission Date: 20050211
  Serious: Yes (Hospitalization)
  Sender: FDA-Public Use
  Company Number: None

PATIENT
  Age: 68 Year
  Sex: Male

DRUGS (4)
  1. LORAZEPAM [Suspect]
     Indication: ANXIETY
     Dosage: 2 MG QD
     Dates: start: 20010401
  2. LORTAB [Suspect]
     Indication: PAIN
     Dosage: 1 Q 8 H PRN
     Dates: start: 20040301
  3. ATENOLOL [Concomitant]
  4. BACLOFEN [Concomitant]

REACTIONS (2)
  - DEPRESSED LEVEL OF CONSCIOUSNESS [None]
  - MEDICATION ERROR [None]
